FAERS Safety Report 13793743 (Version 1)
Quarter: 2017Q3

REPORT INFORMATION
  Report Type: Spontaneous
  Country: ES (occurrence: ES)
  Receive Date: 20170726
  Receipt Date: 20170726
  Transmission Date: 20171127
  Serious: Yes (Hospitalization)
  Sender: FDA-Public Use
  Company Number: ES-AUROBINDO-AUR-APL-2012-03277

PATIENT
  Age: 34 Year
  Sex: Female

DRUGS (5)
  1. IMIPENEM [Suspect]
     Active Substance: IMIPENEM
     Indication: ANTIBIOTIC THERAPY
     Dosage: UNK UNK,UNK,
     Route: 065
  2. TACROLIMUS. [Suspect]
     Active Substance: TACROLIMUS
     Indication: IMMUNOSUPPRESSION
     Dosage: UNK UNK,UNK,
     Route: 065
  3. VANCOMYCIN [Suspect]
     Active Substance: VANCOMYCIN
     Indication: ANTIBIOTIC THERAPY
     Dosage: UNK UNK,UNK,
     Route: 065
  4. MYCOPHENOLATE [Suspect]
     Active Substance: MYCOPHENOLIC ACID
     Indication: IMMUNOSUPPRESSION
     Dosage: UNK
     Route: 065
  5. FLUCONAZOLE AUROBINDO HARD CAPSULES 100MG [Suspect]
     Active Substance: FLUCONAZOLE
     Indication: ANTIFUNGAL PROPHYLAXIS
     Dosage: 100 MG, DAILY
     Route: 065

REACTIONS (7)
  - General physical health deterioration [Recovered/Resolved]
  - Septic shock [Recovered/Resolved]
  - Abdominal pain [Recovered/Resolved]
  - Gastric disorder [Recovered/Resolved]
  - Systemic candida [Recovered/Resolved]
  - Pyrexia [Recovered/Resolved]
  - Haemodynamic instability [Recovered/Resolved]
